FAERS Safety Report 5837938-4 (Version None)
Quarter: 2008Q3

REPORT INFORMATION
  Report Type: 
  Country: None (occurrence: None)
  Receive Date: 20080808
  Receipt Date: 20080728
  Transmission Date: 20090109
  Serious: Yes (Hospitalization, Other)
  Sender: FDA-Public Use
  Company Number: US-ROCHE-566882

PATIENT
  Sex: Male

DRUGS (3)
  1. PEG-INTERFERON A-2A (RO 25-8310) [Suspect]
     Dosage: FORM: PRE-FILLED SYRINGE
     Route: 065
     Dates: start: 20080306, end: 20080615
  2. RIBAVIRIN [Suspect]
     Route: 065
     Dates: start: 20080306
  3. RIBAVIRIN [Suspect]
     Dosage: DOSE DECREASED.
     Route: 065

REACTIONS (2)
  - ANAEMIA [None]
  - HEPATIC FAILURE [None]
